FAERS Safety Report 20326106 (Version 2)
Quarter: 2022Q1

REPORT INFORMATION
  Report Type: Report from Study
  Country: DE (occurrence: None)
  Receive Date: 20220112
  Receipt Date: 20220217
  Transmission Date: 20220423
  Serious: Yes (Hospitalization)
  Sender: FDA-Public Use
  Company Number: DE-ROCHE-2996557

PATIENT
  Age: 43 Year
  Sex: Female
  Weight: 79 kg

DRUGS (5)
  1. ATEZOLIZUMAB [Suspect]
     Active Substance: ATEZOLIZUMAB
     Indication: Triple negative breast cancer
     Dosage: DATE OF MOST RECENT DOSE OF ATEZOLIZUMAB PRIOR TO AE AND SAE ONSET: 30/NOV/2021
     Route: 041
     Dates: start: 20210907
  2. PACLITAXEL [Suspect]
     Active Substance: PACLITAXEL
     Indication: Triple negative breast cancer
     Dosage: DATE OF MOST RECENT DOSE OF PACLITAXEL PRIOR TO AE AND SAE ONSET: 23/NOV/2021
     Route: 042
     Dates: start: 20210907
  3. CARBOPLATIN [Suspect]
     Active Substance: CARBOPLATIN
     Indication: Triple negative breast cancer
     Dosage: DATE OF MOST RECENT DOSE OF CARBOPLATIN PRIOR TO AE AND SAE ONSET: 23/NOV/2021
     Route: 042
     Dates: start: 20210907
  4. EPIRUBICIN [Suspect]
     Active Substance: EPIRUBICIN
     Indication: Triple negative breast cancer
     Dosage: DATE OF MOST RECENT DOSE OF EPIRUBICIN PRIOR TO AE AND SAE ONSET: 30/NOV/2021
     Route: 042
     Dates: start: 20211130
  5. CYCLOPHOSPHAMIDE [Suspect]
     Active Substance: CYCLOPHOSPHAMIDE
     Indication: Triple negative breast cancer
     Dosage: DATE OF MOST RECENT DOSE OF CYCLOPHOSPHAMIDE PRIOR TO AE AND SAE ONSET: 30/NOV/2021
     Route: 042
     Dates: start: 20211130

REACTIONS (1)
  - Neutropenia [Recovered/Resolved]

NARRATIVE: CASE EVENT DATE: 20211206
